FAERS Safety Report 24010828 (Version 1)
Quarter: 2024Q2

REPORT INFORMATION
  Report Type: Spontaneous
  Country: US (occurrence: US)
  Receive Date: 20240625
  Receipt Date: 20240625
  Transmission Date: 20240716
  Serious: Yes (Life-Threatening, Hospitalization)
  Sender: FDA-Public Use
  Company Number: US-JNJFOC-20240652679

PATIENT
  Age: 19 Year

DRUGS (1)
  1. BENADRYL [Suspect]
     Active Substance: DIPHENHYDRAMINE HYDROCHLORIDE
     Indication: Product used for unknown indication
     Route: 065

REACTIONS (9)
  - Suicide attempt [Unknown]
  - Rhabdomyolysis [Unknown]
  - Renal failure [Recovering/Resolving]
  - Compartment syndrome [Unknown]
  - Respiratory failure [Unknown]
  - Intentional overdose [Unknown]
  - Metabolic acidosis [Unknown]
  - Heart rate increased [Unknown]
  - Mental status changes [Unknown]
